FAERS Safety Report 20680643 (Version 1)
Quarter: 2022Q2

REPORT INFORMATION
  Report Type: Spontaneous
  Country: US (occurrence: None)
  Receive Date: 20220405
  Receipt Date: 20220405
  Transmission Date: 20220721
  Serious: No
  Sender: FDA-Public Use
  Company Number: None

PATIENT
  Sex: Female

DRUGS (1)
  1. GLATIRAMER ACETATE [Suspect]
     Active Substance: GLATIRAMER ACETATE
     Indication: Multiple sclerosis
     Dosage: FREQUENCY : 3 TIMES A WEEK;?
     Route: 058

REACTIONS (8)
  - Condition aggravated [None]
  - Illness [None]
  - Hypophagia [None]
  - Asthenia [None]
  - Weight decreased [None]
  - Therapy interrupted [None]
  - Infection susceptibility increased [None]
  - Gastroenteritis viral [None]
